FAERS Safety Report 6254662-7 (Version None)
Quarter: 2009Q3

REPORT INFORMATION
  Report Type: 
  Country: None (occurrence: None)
  Receive Date: 20090702
  Receipt Date: 20090619
  Transmission Date: 20100115
  Serious: Yes (Hospitalization)
  Sender: FDA-Public Use
  Company Number: R0004663A

PATIENT
  Age: 86 Year
  Sex: Female

DRUGS (2)
  1. BLINDED VACCINE [Suspect]
     Route: 030
     Dates: start: 20081020, end: 20081020
  2. DIGOXIN [Suspect]
     Dosage: .125MG PER DAY
     Route: 048
     Dates: start: 20030101

REACTIONS (2)
  - SPINAL COMPRESSION FRACTURE [None]
  - THERAPEUTIC AGENT TOXICITY [None]
